FAERS Safety Report 7943825-8 (Version None)
Quarter: 2011Q4

REPORT INFORMATION
  Report Type: 
  Country: None (occurrence: None)
  Receive Date: 20111128
  Receipt Date: 20111117
  Transmission Date: 20120403
  Serious: Yes (Hospitalization, Other)
  Sender: FDA-Public Use
  Company Number: US-ROCHE-621408

PATIENT
  Sex: Male
  Weight: 77.1 kg

DRUGS (4)
  1. TRIAMCINOLONE [Concomitant]
     Indication: ACNE
  2. MINOCIN [Concomitant]
     Indication: ACNE
  3. ACCUTANE [Suspect]
     Route: 065
     Dates: start: 19821229, end: 19830324
  4. ACCUTANE [Suspect]
     Indication: ACNE
     Route: 065

REACTIONS (10)
  - BLOOD CHOLESTEROL DECREASED [None]
  - SMALL INTESTINAL OBSTRUCTION [None]
  - ENTEROCUTANEOUS FISTULA [None]
  - INFLAMMATORY BOWEL DISEASE [None]
  - PROCTITIS [None]
  - BLOOD TRIGLYCERIDES INCREASED [None]
  - CROHN'S DISEASE [None]
  - PYODERMA GANGRENOSUM [None]
  - COLITIS ULCERATIVE [None]
  - HAEMATOCRIT DECREASED [None]
